FAERS Safety Report 24593497 (Version 1)
Quarter: 2024Q4

REPORT INFORMATION
  Report Type: Spontaneous
  Country: PL (occurrence: PL)
  Receive Date: 20241108
  Receipt Date: 20241108
  Transmission Date: 20250114
  Serious: Yes (Other)
  Sender: SUNOVION
  Company Number: None

PATIENT

DRUGS (9)
  1. LATUDA [Suspect]
     Active Substance: LURASIDONE HYDROCHLORIDE
     Indication: Schizophrenia
     Dosage: 1 TABLET AT NIGHT
     Route: 048
     Dates: start: 20210716, end: 20210720
  2. LATUDA [Suspect]
     Active Substance: LURASIDONE HYDROCHLORIDE
     Dosage: THERAPY ONGOING; 1 TABLET AT NIGHT
     Dates: start: 20210721
  3. DIOSMIN [Suspect]
     Active Substance: DIOSMIN
     Indication: Oedema peripheral
     Dosage: 1000MG IN THE MORNING AND IN THE EVENING
     Route: 048
     Dates: start: 20210601, end: 20210718
  4. DIOSMIN [Suspect]
     Active Substance: DIOSMIN
     Indication: Pain in extremity
  5. ROSUVASTATIN [Concomitant]
     Active Substance: ROSUVASTATIN
     Indication: Blood cholesterol increased
     Dosage: THERAPY ONGOING; 1 TABLET AT NIGHT
     Route: 048
     Dates: start: 20210723
  6. Ibuvit d3 [Concomitant]
     Indication: Hypothyroidism
     Dosage: THERAPY ONGOING; 1 CAPSULE IN THE MORNING AFTER BREAKFAST
     Route: 048
     Dates: start: 20210408
  7. LEVOTHYROXINE SODIUM [Concomitant]
     Active Substance: LEVOTHYROXINE SODIUM
     Indication: Hypothyroidism
     Dosage: THERAPY ONGOING; 1 TABLET ON AN EMPTY STOMACH IN THE MORNING
     Route: 048
     Dates: start: 20210707
  8. LEVOTHYROXINE SODIUM [Concomitant]
     Active Substance: LEVOTHYROXINE SODIUM
     Dosage: THERAPY ONGOING
     Route: 048
     Dates: start: 20110701
  9. Magnez Cardio [Concomitant]
     Indication: Product used for unknown indication
     Dosage: 1 CAPSULE IN THE MORNING AND EVENING
     Route: 065
     Dates: start: 20210601

REACTIONS (13)
  - Altered state of consciousness [Not Recovered/Not Resolved]
  - Hand dermatitis [Not Recovered/Not Resolved]
  - Blister [Not Recovered/Not Resolved]
  - Memory impairment [Not Recovered/Not Resolved]
  - Nervousness [Not Recovered/Not Resolved]
  - Urinary incontinence [Not Recovered/Not Resolved]
  - Impulsive behaviour [Not Recovered/Not Resolved]
  - Aggression [Not Recovered/Not Resolved]
  - Rhinitis [Not Recovered/Not Resolved]
  - Dry skin [Not Recovered/Not Resolved]
  - Migraine [Not Recovered/Not Resolved]
  - Musculoskeletal stiffness [Not Recovered/Not Resolved]
  - Urticaria [Not Recovered/Not Resolved]

NARRATIVE: CASE EVENT DATE: 20210718
